FAERS Safety Report 4598137-X (Version None)
Quarter: 2005Q1

REPORT INFORMATION
  Report Type: 
  Country: None (occurrence: None)
  Receive Date: 20050204
  Receipt Date: 20040301
  Transmission Date: 20050727
  Serious: Yes (Death, Other)
  Sender: FDA-Public Use
  Company Number: PHEH2004US02495

PATIENT
  Age: 83 Year
  Sex: Female

DRUGS (8)
  1. CLOZARIL [Suspect]
     Indication: SENILE DEMENTIA
     Dosage: 62.5 MG/DAY, ORAL
     Route: 048
     Dates: start: 20031224, end: 20040224
  2. ARICEPT [Concomitant]
  3. DILANTIN [Concomitant]
  4. DURAGESIC (FENTANYL) [Concomitant]
  5. LASIX [Concomitant]
  6. LISINOPRIL CARBONATE (LITHIUM CARBONATE) [Concomitant]
  7. POTASSIUM CHLORIDE [Concomitant]
  8. LANTUS [Concomitant]

REACTIONS (2)
  - DEATH [None]
  - DYSPHAGIA [None]
